FAERS Safety Report 6059049-8 (Version None)
Quarter: 2009Q1

REPORT INFORMATION
  Report Type: 
  Country: None (occurrence: None)
  Receive Date: 20090130
  Receipt Date: 20090119
  Transmission Date: 20090719
  Serious: Yes (Hospitalization)
  Sender: FDA-Public Use
  Company Number: B0554841A

PATIENT
  Age: 44 Year
  Sex: Male

DRUGS (5)
  1. ZOPHREN [Suspect]
     Indication: PROPHYLAXIS
     Dosage: 8MG PER DAY
     Route: 042
     Dates: start: 20080508, end: 20080508
  2. PLITICAN [Suspect]
     Dosage: 100MG PER DAY
     Route: 042
     Dates: start: 20080508, end: 20080508
  3. INNOHEP [Suspect]
     Indication: VENOUS THROMBOSIS
     Route: 065
     Dates: start: 20080425
  4. ZAMUDOL [Suspect]
     Indication: PAIN
     Dosage: 100MG THREE TIMES PER DAY
     Route: 065
     Dates: start: 20080427, end: 20080507
  5. NEUPOGEN [Suspect]
     Route: 065

REACTIONS (2)
  - HEPATITIS ACUTE [None]
  - TRANSAMINASES INCREASED [None]
